FAERS Safety Report 16236115 (Version 1)
Quarter: 2019Q2

REPORT INFORMATION
  Report Type: Spontaneous
  Country: AT (occurrence: AT)
  Receive Date: 20190425
  Receipt Date: 20190425
  Transmission Date: 20190711
  Serious: Yes (Other)
  Sender: FDA-Public Use
  Company Number: AT-BRISTOL-MYERS SQUIBB COMPANY-BMS-2019-039622

PATIENT
  Age: 80 Year
  Sex: Male

DRUGS (1)
  1. NIVOLUMAB [Suspect]
     Active Substance: NIVOLUMAB
     Indication: NON-SMALL CELL LUNG CANCER
     Dosage: UNK
     Route: 065
     Dates: start: 20180706

REACTIONS (5)
  - Vascular stent thrombosis [Unknown]
  - Arteriosclerosis coronary artery [Unknown]
  - Myocarditis [Unknown]
  - Coronary artery disease [Unknown]
  - Oesophageal candidiasis [Unknown]

NARRATIVE: CASE EVENT DATE: 20180817
